FAERS Safety Report 15167400 (Version 1)
Quarter: 2018Q3

REPORT INFORMATION
  Report Type: Spontaneous
  Country: US (occurrence: US)
  Receive Date: 20180621
  Receipt Date: 20180621
  Transmission Date: 20181010
  Serious: Yes (Other)
  Sender: FDA-Public Use
  Company Number: None

PATIENT
  Age: 34 Year
  Sex: Female
  Weight: 56.7 kg

DRUGS (5)
  1. LORATADINE. [Concomitant]
     Active Substance: LORATADINE
  2. VIT C WITH ROSE HIPS [Concomitant]
  3. VITAMIN D3 [Concomitant]
     Active Substance: CHOLECALCIFEROL
  4. FLUTICASONE PROPIONATE 50 MCG [Suspect]
     Active Substance: FLUTICASONE PROPIONATE
     Indication: RHINITIS ALLERGIC
     Dosage: ?          QUANTITY:1 BOTTLE;OTHER ROUTE:EACH NOSTRIL?
     Dates: start: 20170501, end: 20180204
  5. TRIAMETERENE/HCTZ [Concomitant]
     Active Substance: HYDROCHLOROTHIAZIDE\TRIAMTERENE

REACTIONS (4)
  - Epistaxis [None]
  - Rhinalgia [None]
  - Nasal congestion [None]
  - Nasal septum perforation [None]

NARRATIVE: CASE EVENT DATE: 20180203
